FAERS Safety Report 16999844 (Version 2)
Quarter: 2019Q4

REPORT INFORMATION
  Report Type: Spontaneous
  Country: US (occurrence: US)
  Receive Date: 20191106
  Receipt Date: 20191126
  Transmission Date: 20200122
  Serious: No
  Sender: FDA-Public Use
  Company Number: US-PFIZER INC-2019478257

PATIENT
  Age: 50 Year
  Sex: Female
  Weight: 57 kg

DRUGS (1)
  1. ESTRING [Suspect]
     Active Substance: ESTRADIOL
     Indication: VULVOVAGINAL DRYNESS
     Dosage: UNK (A RING FOR 3 MONTHS)
     Dates: start: 20191005, end: 2019

REACTIONS (5)
  - Vulvovaginal pain [Recovering/Resolving]
  - Vulvovaginal discomfort [Recovering/Resolving]
  - Vaginal mucosal blistering [Recovering/Resolving]
  - Dyspareunia [Recovering/Resolving]
  - Drug ineffective [Unknown]

NARRATIVE: CASE EVENT DATE: 2019
